FAERS Safety Report 5833639-7 (Version None)
Quarter: 2008Q3

REPORT INFORMATION
  Report Type: 
  Country: None (occurrence: None)
  Receive Date: 20080801
  Receipt Date: 20080722
  Transmission Date: 20090109
  Serious: Yes (Other)
  Sender: FDA-Public Use
  Company Number: 163-21880-08070016

PATIENT
  Age: 58 Year
  Sex: Male

DRUGS (7)
  1. REVLIMID (THALIDOMIDE) [Suspect]
     Indication: MULTIPLE MYELOMA
     Dosage: 5 MG, 1 IN 1 D, ORAL; X21 DAYS EVERY 28 DAYS, ORAL
     Route: 048
     Dates: start: 20070129, end: 20070201
  2. REVLIMID (THALIDOMIDE) [Suspect]
     Indication: MULTIPLE MYELOMA
     Dosage: 5 MG, 1 IN 1 D, ORAL; X21 DAYS EVERY 28 DAYS, ORAL
     Route: 048
     Dates: start: 20070322, end: 20070401
  3. REVLIMID (THALIDOMIDE) [Suspect]
     Indication: MULTIPLE MYELOMA
     Dosage: 5 MG, 1 IN 1 D, ORAL; X21 DAYS EVERY 28 DAYS, ORAL
     Route: 048
     Dates: start: 20070416, end: 20070501
  4. REVLIMID (THALIDOMIDE) [Suspect]
     Indication: MULTIPLE MYELOMA
     Dosage: 5 MG, 1 IN 1 D, ORAL; X21 DAYS EVERY 28 DAYS, ORAL
     Route: 048
     Dates: start: 20070514, end: 20080501
  5. REVLIMID (THALIDOMIDE) [Suspect]
     Indication: MULTIPLE MYELOMA
     Dosage: 5 MG, 1 IN 1 D, ORAL; X21 DAYS EVERY 28 DAYS, ORAL
     Route: 048
     Dates: start: 20080523
  6. MULTIVITAMIN [Concomitant]
  7. COUMADIN [Concomitant]

REACTIONS (6)
  - DEEP VEIN THROMBOSIS [None]
  - FULL BLOOD COUNT DECREASED [None]
  - NEUTROPENIA [None]
  - RASH [None]
  - SQUAMOUS CELL CARCINOMA OF SKIN [None]
  - WHITE BLOOD CELL COUNT DECREASED [None]
